FAERS Safety Report 5931210-X (Version None)
Quarter: 2008Q4

REPORT INFORMATION
  Report Type: 
  Country: None (occurrence: None)
  Receive Date: 20081027
  Receipt Date: 20081022
  Transmission Date: 20090506
  Serious: Yes (Life-Threatening, Other)
  Sender: FDA-Public Use
  Company Number: GB-WYE-G02270308

PATIENT
  Sex: Female

DRUGS (3)
  1. GEMTUZUMAB OZOGAMICIN [Suspect]
     Dosage: UNKNOWN
  2. ARA-C [Suspect]
     Dosage: 1 DOSE EVERY 1 TOT
     Dates: start: 20080926, end: 20080926
  3. DAUNORUBICIN HCL [Suspect]
     Dosage: 1 DOSE EVERY 1 TOT
     Dates: start: 20080926, end: 20080926

REACTIONS (6)
  - CREPITATIONS [None]
  - DIASTOLIC DYSFUNCTION [None]
  - MYOCARDIAL INFARCTION [None]
  - TACHYCARDIA [None]
  - VENTRICULAR DYSFUNCTION [None]
  - VENTRICULAR HYPOKINESIA [None]
